FAERS Safety Report 21530515 (Version 1)
Quarter: 2022Q4

REPORT INFORMATION
  Report Type: Spontaneous
  Country: US (occurrence: None)
  Receive Date: 20221028
  Receipt Date: 20221028
  Transmission Date: 20230113
  Serious: No
  Sender: FDA-Public Use
  Company Number: None

PATIENT
  Age: 35 Year
  Sex: Male
  Weight: 87.75 kg

DRUGS (4)
  1. AMPHETAMINE\DEXTROAMPHETAMINE [Suspect]
     Active Substance: AMPHETAMINE\DEXTROAMPHETAMINE
     Indication: Attention deficit hyperactivity disorder
     Dosage: OTHER QUANTITY : 1 TABLET(S);?
     Route: 048
     Dates: start: 20220801
  2. Cabergoline (Greenstone) [Concomitant]
  3. Centrum multi [Concomitant]
  4. Swanson p5p [Concomitant]

REACTIONS (7)
  - Memory impairment [None]
  - Headache [None]
  - Headache [None]
  - Fatigue [None]
  - Memory impairment [None]
  - Product substitution issue [None]
  - Job dissatisfaction [None]

NARRATIVE: CASE EVENT DATE: 20221027
